FAERS Safety Report 11668653 (Version 1)
Quarter: 2015Q4

REPORT INFORMATION
  Report Type: Spontaneous
  Country: US (occurrence: US)
  Receive Date: 20151027
  Receipt Date: 20151027
  Transmission Date: 20160304
  Serious: No
  Sender: FDA-Public Use
  Company Number: US-GLAXOSMITHKLINE-US2015149475

PATIENT
  Age: 75 Year
  Sex: Male
  Weight: 77 kg

DRUGS (1)
  1. EQUATE NICOTINE [Suspect]
     Active Substance: NICOTINE
     Indication: SMOKING CESSATION THERAPY
     Dosage: 14 MG, UNK
     Dates: start: 20151012, end: 20151018

REACTIONS (2)
  - Pruritus [Not Recovered/Not Resolved]
  - Application site erythema [Not Recovered/Not Resolved]
